FAERS Safety Report 8805919 (Version 1)
Quarter: 2012Q4

REPORT INFORMATION
  Report Type: Spontaneous
  Country: US (occurrence: None)
  Receive Date: 20120919
  Receipt Date: 20120919
  Transmission Date: 20130627
  Serious: Yes (Other)
  Sender: FDA-Public Use
  Company Number: None

PATIENT
  Age: 52 Year
  Sex: Female
  Weight: 48.08 kg

DRUGS (1)
  1. FASLODEX [Suspect]
     Dosage: 500 mg Q2wks IM
     Route: 030
     Dates: start: 20120919, end: 20120919

REACTIONS (2)
  - Hypotension [None]
  - Bradycardia [None]
